FAERS Safety Report 5855001-3 (Version None)
Quarter: 2008Q3

REPORT INFORMATION
  Report Type: 
  Country: None (occurrence: None)
  Receive Date: 20080822
  Receipt Date: 20080430
  Transmission Date: 20090109
  Serious: No
  Sender: FDA-Public Use
  Company Number: US-ABBOTT-08P-163-0449981-00

PATIENT
  Sex: Female
  Weight: 72.64 kg

DRUGS (4)
  1. SYNTHROID [Suspect]
     Indication: HYPOTHYROIDISM
     Dosage: OVER 2 YEARS, LAST SCRIPT WAS GENERICS, IS AT HOME, REPRESCRIBED SYNR+THROID
     Route: 048
     Dates: start: 20060101
  2. AMBIEN [Concomitant]
     Indication: INSOMNIA
     Route: 048
     Dates: start: 20060101
  3. BUPROPION HCL [Concomitant]
     Indication: MOOD SWINGS
  4. AMBIEN [Concomitant]
     Indication: INSOMNIA
     Route: 048
     Dates: start: 20060101

REACTIONS (7)
  - BRONCHITIS [None]
  - COUGH [None]
  - HEADACHE [None]
  - LYMPHADENOPATHY [None]
  - RASH [None]
  - RASH PRURITIC [None]
  - VIRAL INFECTION [None]
